FAERS Safety Report 5556024-4 (Version None)
Quarter: 2007Q4

REPORT INFORMATION
  Report Type: 
  Country: None (occurrence: None)
  Receive Date: 20071213
  Receipt Date: 20070615
  Transmission Date: 20080405
  Serious: Yes (Other)
  Sender: FDA-Public Use
  Company Number: MX-PFIZER INC-2007103206

PATIENT
  Age: 33 Year
  Sex: Female

DRUGS (2)
  1. CHAMPIX [Suspect]
     Indication: SMOKING CESSATION THERAPY
     Route: 048
  2. XENICAL [Concomitant]
     Dates: start: 20070601, end: 20070601

REACTIONS (5)
  - ABNORMAL BEHAVIOUR [None]
  - COMPLETED SUICIDE [None]
  - CRYING [None]
  - NIGHTMARE [None]
  - PANIC ATTACK [None]
